FAERS Safety Report 5981768-X (Version None)
Quarter: 2008Q4

REPORT INFORMATION
  Report Type: 
  Country: None (occurrence: None)
  Receive Date: 20081205
  Receipt Date: 20081201
  Transmission Date: 20090506
  Serious: No
  Sender: FDA-Public Use
  Company Number: US-B.I. PHARMACEUTICALS,INC./RIDGEFIELD-2008-BP-18064BP

PATIENT
  Sex: Female

DRUGS (4)
  1. SPIRIVA [Suspect]
     Indication: DYSPNOEA
     Dosage: 18MCG
     Route: 055
     Dates: start: 20060101
  2. TOPROL-XL [Concomitant]
     Indication: HEART RATE INCREASED
     Route: 048
     Dates: start: 20000101
  3. FISH OIL [Concomitant]
     Indication: PROPHYLAXIS
     Route: 048
  4. FLAX MEAL [Concomitant]
     Indication: PROPHYLAXIS
     Route: 048

REACTIONS (4)
  - DIPLOPIA [None]
  - HYPOTHYROIDISM [None]
  - MUSCLE DISORDER [None]
  - VISION BLURRED [None]
